FAERS Safety Report 15014347 (Version 1)
Quarter: 2018Q2

REPORT INFORMATION
  Report Type: Spontaneous
  Country: US (occurrence: US)
  Receive Date: 20180615
  Receipt Date: 20180615
  Transmission Date: 20180711
  Serious: No
  Sender: FDA-Public Use
  Company Number: US-JNJFOC-20180601388

PATIENT
  Sex: Male

DRUGS (1)
  1. FENTANYL TRANSDERMAL SYSTEM [Suspect]
     Active Substance: FENTANYL
     Indication: NEURALGIA
     Dosage: STARTED ON AN UNSPECIFIED DATE IN 2014 OR 2015
     Route: 062

REACTIONS (3)
  - Product availability issue [Unknown]
  - Hypoacusis [Not Recovered/Not Resolved]
  - Drug dose omission [Unknown]
